FAERS Safety Report 22298085 (Version 2)
Quarter: 2024Q1

REPORT INFORMATION
  Report Type: Spontaneous
  Country: JP (occurrence: JP)
  Receive Date: 20230509
  Receipt Date: 20240330
  Transmission Date: 20240409
  Serious: No
  Sender: FDA-Public Use
  Company Number: JP-KYOWAKIRIN-2023AKK006371

PATIENT
  Age: 57 Year
  Sex: Male

DRUGS (1)
  1. PEGFILGRASTIM [Suspect]
     Active Substance: PEGFILGRASTIM
     Indication: Peripheral blood stem cell apheresis
     Dosage: 7.2 MILLIGRAM, QD (7.2 MG, SINGLE)
     Route: 058

REACTIONS (11)
  - Insomnia [Recovered/Resolved]
  - Eating disorder [Recovered/Resolved]
  - Malaise [Recovered/Resolved]
  - Movement disorder [Recovered/Resolved]
  - Chest pain [Recovered/Resolved]
  - Obstructive airways disorder [Recovered/Resolved]
  - Arthralgia [Recovered/Resolved]
  - Back pain [Recovered/Resolved]
  - Pyrexia [Recovered/Resolved]
  - Myalgia [Recovered/Resolved]
  - Suffocation feeling [Recovered/Resolved]
